FAERS Safety Report 6906966-X (Version None)
Quarter: 2010Q3

REPORT INFORMATION
  Report Type: 
  Country: None (occurrence: None)
  Receive Date: 20100804
  Receipt Date: 20080226
  Transmission Date: 20110219
  Serious: Yes (Hospitalization)
  Sender: FDA-Public Use
  Company Number: US-PFIZER INC-2008019313

PATIENT
  Sex: Female
  Weight: 57.727 kg

DRUGS (4)
  1. NARDIL [Suspect]
     Indication: ANXIETY
     Dates: start: 19820101, end: 20070901
  2. NARDIL [Suspect]
     Indication: DEPRESSION
  3. KLONOPIN [Concomitant]
  4. INTERFERON [Concomitant]

REACTIONS (1)
  - CONVULSION [None]
